FAERS Safety Report 6847991-7 (Version None)
Quarter: 2010Q3

REPORT INFORMATION
  Report Type: 
  Country: None (occurrence: None)
  Receive Date: 20100716
  Receipt Date: 20100707
  Transmission Date: 20110219
  Serious: Yes (Hospitalization, Other)
  Sender: FDA-Public Use
  Company Number: US-WYE-H16042010

PATIENT
  Sex: Male

DRUGS (3)
  1. EFFEXOR XR [Suspect]
     Indication: DEPRESSION
     Dates: start: 20000101
  2. EFFEXOR XR [Suspect]
     Indication: AGITATION
     Dosage: 150 MG IN THE MORNINGS AND 75 MG NIGHTLY
  3. EFFEXOR XR [Suspect]
     Dates: end: 20100705

REACTIONS (5)
  - CEREBROVASCULAR ACCIDENT [None]
  - FEEDING TUBE COMPLICATION [None]
  - NONSPECIFIC REACTION [None]
  - TRANSIENT ISCHAEMIC ATTACK [None]
  - WEIGHT DECREASED [None]
